FAERS Safety Report 20153403 (Version 3)
Quarter: 2022Q2

REPORT INFORMATION
  Report Type: Spontaneous
  Country: US (occurrence: US)
  Receive Date: 20211206
  Receipt Date: 20220420
  Transmission Date: 20220721
  Serious: No
  Sender: FDA-Public Use
  Company Number: US-KARYOPHARM-2021KPT001343

PATIENT

DRUGS (14)
  1. XPOVIO [Suspect]
     Active Substance: SELINEXOR
     Indication: Plasma cell myeloma
     Dosage: 80 MG, WEEKLY
     Route: 048
     Dates: start: 20211021
  2. KYPROLIS [Concomitant]
     Active Substance: CARFILZOMIB
  3. ZOFRAN [Concomitant]
     Active Substance: ONDANSETRON HYDROCHLORIDE
  4. OLANZAPINE [Concomitant]
     Active Substance: OLANZAPINE
  5. AMOXICILLIN [Concomitant]
     Active Substance: AMOXICILLIN
  6. ANDRODERM [Concomitant]
     Active Substance: TESTOSTERONE
  7. ATORVASTATIN [Concomitant]
     Active Substance: ATORVASTATIN
  8. DEXAMETHASONE [Concomitant]
     Active Substance: DEXAMETHASONE
  9. GLIPIZIDE [Concomitant]
     Active Substance: GLIPIZIDE
  10. LEVOTHYROXINE [Concomitant]
     Active Substance: LEVOTHYROXINE
  11. TADALAFIL [Concomitant]
     Active Substance: TADALAFIL
  12. VALACYCLOVIR [Concomitant]
     Active Substance: VALACYCLOVIR HYDROCHLORIDE
  13. WARFARIN [Concomitant]
     Active Substance: WARFARIN
  14. XGEVA [Concomitant]
     Active Substance: DENOSUMAB

REACTIONS (5)
  - Headache [Unknown]
  - Feeling abnormal [Not Recovered/Not Resolved]
  - Sluggishness [Unknown]
  - Fatigue [Recovering/Resolving]
  - Diarrhoea [Recovering/Resolving]

NARRATIVE: CASE EVENT DATE: 20211001
